FAERS Safety Report 6595533-6 (Version None)
Quarter: 2010Q2

REPORT INFORMATION
  Report Type: 
  Country: None (occurrence: None)
  Receive Date: 20100223
  Receipt Date: 20100218
  Transmission Date: 20101027
  Serious: Yes (Other)
  Sender: FDA-Public Use
  Company Number: US-RB-003087-10

PATIENT
  Age: 52 Year
  Sex: Female

DRUGS (2)
  1. MUCINEX D [Suspect]
     Indication: COUGH
     Dosage: TOOK ONE TABLET EVERY 12 HOURS FOR 3 DAYS
     Route: 048
     Dates: start: 20100215
  2. MUCINEX D [Suspect]
     Dosage: TOOK ONE TABLET EVERY 12 HOURS FOR 3 DAYS
     Route: 048
     Dates: start: 20100215

REACTIONS (10)
  - ABDOMINAL PAIN UPPER [None]
  - DIZZINESS [None]
  - HAEMORRHOIDAL HAEMORRHAGE [None]
  - HEADACHE [None]
  - HEART RATE INCREASED [None]
  - INSOMNIA [None]
  - NASAL DISCOMFORT [None]
  - NERVOUSNESS [None]
  - ORAL PAIN [None]
  - RASH [None]
